FAERS Safety Report 24750462 (Version 1)
Quarter: 2024Q4

REPORT INFORMATION
  Report Type: Spontaneous
  Country: US (occurrence: US)
  Receive Date: 20241218
  Receipt Date: 20241218
  Transmission Date: 20250115
  Serious: No
  Sender: BIOMARIN
  Company Number: US-BIOMARINAP-US-2024-162609

PATIENT

DRUGS (1)
  1. VOXZOGO [Suspect]
     Active Substance: VOSORITIDE
     Indication: Osteochondrodysplasia
     Dosage: 0.24 MILLIGRAM, QD
     Route: 058
     Dates: start: 20240718

REACTIONS (2)
  - Influenza [Recovering/Resolving]
  - Pyrexia [Recovering/Resolving]

NARRATIVE: CASE EVENT DATE: 20241210
